FAERS Safety Report 8911148 (Version 1)
Quarter: 2012Q4

REPORT INFORMATION
  Report Type: 
  Country: US (occurrence: US)
  Receive Date: 20121116
  Receipt Date: 20121116
  Transmission Date: 20130627
  Serious: No
  Sender: FDA-Public Use
  Company Number: US-GLAXOSMITHKLINE-A0987434A

PATIENT
  Age: 75 Year
  Sex: Male

DRUGS (2)
  1. VOTRIENT [Suspect]
     Indication: MALIGNANT SOFT TISSUE NEOPLASM
     Dosage: 200MG See dosage text
     Route: 048
     Dates: start: 20120510
  2. SIMVASTATIN [Concomitant]
     Dosage: 10MG Per day

REACTIONS (5)
  - Hair growth abnormal [Unknown]
  - Diarrhoea [Unknown]
  - Arthralgia [Unknown]
  - Muscle spasms [Unknown]
  - Hair colour changes [Unknown]
